FAERS Safety Report 4606498-8 (Version None)
Quarter: 2005Q2

REPORT INFORMATION
  Report Type: 
  Country: None (occurrence: None)
  Receive Date: 20050223
  Receipt Date: 20040708
  Transmission Date: 20051028
  Serious: Yes (Disabling)
  Sender: FDA-Public Use
  Company Number: WAES   0407USA00743

PATIENT
  Age: 62 Year
  Sex: Male

DRUGS (4)
  1. ZOCOR [Suspect]
     Indication: BLOOD CHOLESTEROL INCREASED
     Dosage: 20 MG/DAILY/PO
     Route: 048
     Dates: start: 20040401, end: 20040101
  2. TYLENOL (CAPLET) [Concomitant]
  3. THERAPY UNSPECIFIED [Concomitant]
  4. LISINOPRIL [Concomitant]

REACTIONS (1)
  - MYALGIA [None]
